FAERS Safety Report 6125513-6 (Version None)
Quarter: 2009Q1

REPORT INFORMATION
  Report Type: 
  Country: None (occurrence: None)
  Receive Date: 20090320
  Receipt Date: 20090309
  Transmission Date: 20090719
  Serious: Yes (Disabling)
  Sender: FDA-Public Use
  Company Number: PL-SANOFI-SYNTHELABO-A01200902605

PATIENT
  Sex: Male
  Weight: 98 kg

DRUGS (1)
  1. LOKREN [Suspect]
     Indication: ESSENTIAL HYPERTENSION
     Dosage: 20 MG
     Route: 048
     Dates: start: 20090119, end: 20090128

REACTIONS (4)
  - BALANCE DISORDER [None]
  - DIPLOPIA [None]
  - HEADACHE [None]
  - VERTIGO [None]
